FAERS Safety Report 9159901 (Version 4)
Quarter: 2013Q1

REPORT INFORMATION
  Report Type: Spontaneous
  Country: US (occurrence: None)
  Receive Date: 20130208
  Receipt Date: 20130307
  Transmission Date: 20140127
  Serious: Yes (Hospitalization)
  Sender: FDA-Public Use
  Company Number: 2013-0193

PATIENT
  Age: 82 Year
  Sex: Female

DRUGS (5)
  1. KYPROLIS [Suspect]
     Indication: PLASMA CELL MYELOMA
     Route: 042
     Dates: start: 20121227
  2. LOVASTATIN (LOVASTATIN) (LOVASTATIN) [Concomitant]
  3. AMLODIPINE (AMLODIPINE) (AMLODIPINE) [Concomitant]
  4. PROPOXYPHENE (DEXTROPROPOXYPHENE) (DEXTROPROPOXYPHENE) [Concomitant]
  5. DICLOFENAC (DICLOFENAC) [Concomitant]

REACTIONS (3)
  - Syncope [None]
  - Renal failure [None]
  - Pneumonitis [None]
